FAERS Safety Report 11418484 (Version 1)
Quarter: 2015Q3

REPORT INFORMATION
  Report Type: Spontaneous
  Country: US (occurrence: US)
  Receive Date: 20150826
  Receipt Date: 20150826
  Transmission Date: 20151125
  Serious: No
  Sender: FDA-Public Use
  Company Number: US-NOVEN PHARMACEUTICALS, INC.-US2015000552

PATIENT
  Age: 48 Year
  Sex: Female

DRUGS (4)
  1. MINIVELLE [Suspect]
     Active Substance: ESTRADIOL
     Dosage: HIGHER DOSE, UNKNOWN
     Route: 062
  2. MINIVELLE [Suspect]
     Active Substance: ESTRADIOL
     Indication: HORMONE REPLACEMENT THERAPY
     Dosage: 0.0375 MG, QD
     Route: 062
     Dates: start: 201307
  3. MINIVELLE [Suspect]
     Active Substance: ESTRADIOL
     Dosage: 0.0375 MG, 2/WK
     Route: 062
     Dates: end: 201506
  4. MINIVELLE [Suspect]
     Active Substance: ESTRADIOL
     Dosage: 0.0375 MG, QD
     Route: 062
     Dates: start: 201506

REACTIONS (15)
  - Nausea [Unknown]
  - Incorrect drug administration duration [Unknown]
  - Feeling abnormal [Unknown]
  - Headache [Unknown]
  - Bradyphrenia [Unknown]
  - Insomnia [Unknown]
  - Fatigue [Unknown]
  - Hormone level abnormal [Unknown]
  - Palpitations [Unknown]
  - Off label use [Unknown]
  - Hypoglycaemia [Unknown]
  - Feeding disorder [Unknown]
  - Diarrhoea [Unknown]
  - Vomiting [Unknown]
  - Hot flush [Unknown]
